FAERS Safety Report 20919288 (Version 1)
Quarter: 2022Q2

REPORT INFORMATION
  Report Type: Other
  Country: PK (occurrence: None)
  Receive Date: 20220606
  Receipt Date: 20220606
  Transmission Date: 20220721
  Serious: Yes (Other)
  Sender: FDA-Public Use
  Company Number: PK-Navinta LLC-000267

PATIENT
  Age: 57 Year
  Sex: Male

DRUGS (8)
  1. RIBAVIRIN [Suspect]
     Active Substance: RIBAVIRIN
     Indication: Hepatitis C
  2. SOFOSBUVIR [Suspect]
     Active Substance: SOFOSBUVIR
     Indication: Hepatitis C
  3. DACLATASVIR [Suspect]
     Active Substance: DACLATASVIR
     Indication: Hepatitis C
  4. VELPATASVIR [Suspect]
     Active Substance: VELPATASVIR
     Indication: Hepatitis C
  5. RIBAVIRIN [Suspect]
     Active Substance: RIBAVIRIN
     Indication: Hepatitis C
  6. RIBAVIRIN [Suspect]
     Active Substance: RIBAVIRIN
     Indication: Hepatitis C
  7. SOFOSBUVIR [Suspect]
     Active Substance: SOFOSBUVIR
     Indication: Hepatitis C
  8. SOFOSBUVIR [Suspect]
     Active Substance: SOFOSBUVIR
     Indication: Hepatitis C

REACTIONS (3)
  - Treatment failure [Unknown]
  - Hepatocellular carcinoma [Unknown]
  - Disease progression [Unknown]
